FAERS Safety Report 5715777-2 (Version None)
Quarter: 2008Q2

REPORT INFORMATION
  Report Type: 
  Country: None (occurrence: None)
  Receive Date: 20080424
  Receipt Date: 20080424
  Transmission Date: 20081010
  Serious: No
  Sender: FDA-Public Use
  Company Number: None

PATIENT
  Age: 86 Year
  Sex: Male

DRUGS (2)
  1. HEPARIN SODIUM [Suspect]
     Dosage: 475 UNITS PER HOUR IV
     Route: 042
     Dates: start: 20071231, end: 20080102
  2. ENOXAPARIN SODIUM [Suspect]
     Dosage: 60 MG BID SQ
     Route: 058
     Dates: start: 20071226, end: 20071231

REACTIONS (9)
  - ACUTE MYOCARDIAL INFARCTION [None]
  - BLADDER DISORDER [None]
  - CARDIAC FAILURE CONGESTIVE [None]
  - CHEST PAIN [None]
  - CORONARY ARTERY DISEASE [None]
  - HAEMATOMA [None]
  - HYPOTENSION [None]
  - RESPIRATORY FAILURE [None]
  - SUPRAVENTRICULAR TACHYCARDIA [None]
